FAERS Safety Report 12488169 (Version 1)
Quarter: 2016Q2

REPORT INFORMATION
  Report Type: Spontaneous
  Country: US (occurrence: US)
  Receive Date: 20160622
  Receipt Date: 20160622
  Transmission Date: 20160815
  Serious: No
  Sender: FDA-Public Use
  Company Number: US-FERRINGPH-2015FE04021

PATIENT
  Sex: Male
  Weight: 131.7 kg

DRUGS (1)
  1. DESMOPRESSIN [Suspect]
     Active Substance: DESMOPRESSIN
     Indication: PITUITARY TUMOUR
     Dosage: 0.2 MG, 3 TIMES DAILY
     Route: 048
     Dates: start: 2005, end: 2005

REACTIONS (1)
  - Blood sodium increased [Recovered/Resolved]

NARRATIVE: CASE EVENT DATE: 2005
